FAERS Safety Report 25188144 (Version 2)
Quarter: 2025Q2

REPORT INFORMATION
  Report Type: Report from Study
  Country: US (occurrence: US)
  Receive Date: 20250411
  Receipt Date: 20250428
  Transmission Date: 20250716
  Serious: Yes (Hospitalization, Other)
  Sender: ABBVIE
  Company Number: US-ABBVIE-6212500

PATIENT
  Age: 72 Year
  Sex: Male
  Weight: 97.522 kg

DRUGS (1)
  1. HUMIRA [Suspect]
     Active Substance: ADALIMUMAB
     Indication: Psoriasis
     Dosage: FORM STRENGTH: 40 MG
     Route: 058
     Dates: start: 201105, end: 202503

REACTIONS (4)
  - Tibia fracture [Recovering/Resolving]
  - Cartilage atrophy [Recovering/Resolving]
  - Gait inability [Recovering/Resolving]
  - Osteomalacia [Recovering/Resolving]

NARRATIVE: CASE EVENT DATE: 20250301
